FAERS Safety Report 8845122 (Version 1)
Quarter: 2012Q4

REPORT INFORMATION
  Report Type: 
  Country: CA (occurrence: CA)
  Receive Date: 20121017
  Receipt Date: 20121017
  Transmission Date: 20130627
  Serious: Yes (Other)
  Sender: FDA-Public Use
  Company Number: CA-009507513-1210CAN006427

PATIENT

DRUGS (1)
  1. INDOMETHACIN [Suspect]
     Indication: PATENT DUCTUS ARTERIOSUS

REACTIONS (1)
  - Intraventricular haemorrhage neonatal [Unknown]
